FAERS Safety Report 6561870-4 (Version None)
Quarter: 2010Q1

REPORT INFORMATION
  Report Type: 
  Country: None (occurrence: None)
  Receive Date: 20100130
  Receipt Date: 20091030
  Transmission Date: 20100710
  Serious: No
  Sender: FDA-Public Use
  Company Number: US-ABBOTT-09P-163-0606055-00

PATIENT
  Sex: Male
  Weight: 118.04 kg

DRUGS (3)
  1. HUMIRA [Suspect]
     Indication: PSORIATIC ARTHROPATHY
     Dates: start: 20071203
  2. PREDNISONE [Concomitant]
     Indication: DRUG USE FOR UNKNOWN INDICATION
  3. DIET SUPPLEMENTS [Concomitant]
     Indication: WEIGHT DECREASED

REACTIONS (3)
  - BLOOD CREATINE ABNORMAL [None]
  - DRUG INEFFECTIVE [None]
  - RENAL IMPAIRMENT [None]
